FAERS Safety Report 9007549 (Version 1)
Quarter: 2013Q1

REPORT INFORMATION
  Report Type: Spontaneous
  Country: US (occurrence: US)
  Receive Date: 20130111
  Receipt Date: 20130111
  Transmission Date: 20140127
  Serious: Yes (Other)
  Sender: FDA-Public Use
  Company Number: US-MERCK-1301XAA003326

PATIENT
  Age: 37 Year
  Sex: Female

DRUGS (2)
  1. SINGULAIR [Suspect]
     Indication: ASTHMA
     Route: 048
  2. IPRATROPIUM BROMIDE [Suspect]
     Dosage: 300 MG, UNK

REACTIONS (4)
  - Dysaesthesia [Unknown]
  - Hemiparesis [Unknown]
  - Adverse event [Unknown]
  - Headache [Unknown]
